FAERS Safety Report 10059624 (Version 1)
Quarter: 2014Q2

REPORT INFORMATION
  Report Type: Spontaneous
  Country: US (occurrence: US)
  Receive Date: 20140404
  Receipt Date: 20140404
  Transmission Date: 20141212
  Serious: No
  Sender: FDA-Public Use
  Company Number: US-GLAXOSMITHKLINE-A1034337A

PATIENT
  Age: 59 Year
  Sex: Female

DRUGS (2)
  1. ALLI [Suspect]
     Indication: ARRHYTHMIA
     Dates: start: 20130714, end: 20130720
  2. PROPAFENONE [Suspect]
     Dosage: 75MG THREE TIMES PER DAY
     Route: 048

REACTIONS (12)
  - Arrhythmia [Recovered/Resolved]
  - Eructation [Recovered/Resolved]
  - Dyspnoea [Recovered/Resolved]
  - Blood pressure fluctuation [Recovered/Resolved]
  - Dyspnoea [Recovered/Resolved]
  - Dizziness [Recovered/Resolved]
  - Flatulence [Not Recovered/Not Resolved]
  - Fatigue [Not Recovered/Not Resolved]
  - Frequent bowel movements [Not Recovered/Not Resolved]
  - Gastric disorder [Not Recovered/Not Resolved]
  - Insomnia [Recovered/Resolved]
  - Drug interaction [Unknown]
